FAERS Safety Report 9001584 (Version 5)
Quarter: 2013Q2

REPORT INFORMATION
  Report Type: Report from Study
  Country: US (occurrence: US)
  Receive Date: 20130107
  Receipt Date: 20130520
  Transmission Date: 20140414
  Serious: Yes (Hospitalization, Other)
  Sender: FDA-Public Use
  Company Number: US-BAYER-2012-136600

PATIENT
  Age: 76 Year
  Sex: Male
  Weight: 65.76 kg

DRUGS (1)
  1. STIVARGA [Suspect]
     Indication: COLON CANCER
     Dosage: 160 MG, QD
     Route: 048
     Dates: start: 20121201, end: 20121214

REACTIONS (4)
  - Drug eruption [Recovered/Resolved]
  - Aphagia [None]
  - Weight decreased [None]
  - Rash [None]
